FAERS Safety Report 6464974-X (Version None)
Quarter: 2009Q4

REPORT INFORMATION
  Report Type: 
  Country: None (occurrence: None)
  Receive Date: 20091124
  Receipt Date: 20091113
  Transmission Date: 20100525
  Serious: Yes (Hospitalization, Other)
  Sender: FDA-Public Use
  Company Number: 233087J09USA

PATIENT
  Age: 54 Year
  Sex: Female

DRUGS (6)
  1. REBIF [Suspect]
     Indication: MULTIPLE SCLEROSIS
     Dosage: 44 MCG,
     Dates: start: 20030801, end: 20070801
  2. PLAVIX [Concomitant]
  3. TOPROL-XL [Concomitant]
  4. KLONOPIN [Concomitant]
  5. XANAX [Concomitant]
  6. OXYCODONE HCL [Concomitant]

REACTIONS (3)
  - CEREBROVASCULAR ACCIDENT [None]
  - OPTIC NEURITIS [None]
  - PARAESTHESIA [None]
